FAERS Safety Report 8457205-2 (Version None)
Quarter: 2012Q2

REPORT INFORMATION
  Report Type: 
  Country: None (occurrence: None)
  Receive Date: 20120621
  Receipt Date: 20120619
  Transmission Date: 20120825
  Serious: Yes (Death, Hospitalization, Other)
  Sender: FDA-Public Use
  Company Number: PHHY2012IT052585

PATIENT
  Age: 34 Year
  Sex: Female

DRUGS (5)
  1. CYCLOSPORINE [Suspect]
     Indication: PROPHYLAXIS AGAINST GRAFT VERSUS HOST DISEASE
     Dosage: UNK UKN, UNK
  2. LEUCOVORIN CALCIUM [Concomitant]
     Dosage: UNK UKN, UNK
  3. ANTI-THYMOCYTE GLOBULIN NOS [Concomitant]
     Dosage: 2.5 MG/KG, UNK
  4. METHOTREXATE [Concomitant]
     Dosage: 10 MG/M2, UNK
  5. SIROLIMUS [Concomitant]
     Dosage: UNK UKN, UNK

REACTIONS (24)
  - COMA [None]
  - STOMATITIS [None]
  - GASTROINTESTINAL OBSTRUCTION [None]
  - COLITIS [None]
  - GASTROINTESTINAL DISORDER [None]
  - PNEUMONIA [None]
  - ABDOMINAL PAIN [None]
  - PANCREATITIS [None]
  - BURNING SENSATION [None]
  - PYREXIA [None]
  - PARAESTHESIA [None]
  - GRAFT VERSUS HOST DISEASE [None]
  - SEPSIS [None]
  - CANDIDA SEPSIS [None]
  - DIARRHOEA [None]
  - VOMITING [None]
  - CYTOMEGALOVIRUS INFECTION [None]
  - HEADACHE [None]
  - HYPERGLYCAEMIA [None]
  - OESOPHAGITIS [None]
  - PAIN IN EXTREMITY [None]
  - SHOCK [None]
  - CYSTITIS HAEMORRHAGIC [None]
  - NAUSEA [None]
